FAERS Safety Report 20066500 (Version 1)
Quarter: 2021Q4

REPORT INFORMATION
  Report Type: Spontaneous
  Country: US (occurrence: US)
  Receive Date: 20211115
  Receipt Date: 20211115
  Transmission Date: 20220303
  Serious: No
  Sender: FDA-Public Use
  Company Number: US-BAUSCH-BL-2021-036326

PATIENT
  Sex: Male

DRUGS (2)
  1. RELISTOR [Suspect]
     Active Substance: METHYLNALTREXONE BROMIDE
     Indication: Constipation
     Dosage: 3 TABLETS A DAY
     Route: 048
     Dates: start: 202110, end: 20211101
  2. MIRALAX [Suspect]
     Active Substance: POLYETHYLENE GLYCOL 3350
     Indication: Product used for unknown indication
     Route: 065
     Dates: end: 20211101

REACTIONS (5)
  - Gastrointestinal motility disorder [Unknown]
  - Feeling abnormal [Unknown]
  - Flatulence [Unknown]
  - Diarrhoea [Unknown]
  - Therapeutic response delayed [Unknown]

NARRATIVE: CASE EVENT DATE: 20210101
